FAERS Safety Report 8530407-2 (Version None)
Quarter: 2012Q3

REPORT INFORMATION
  Report Type: 
  Country: None (occurrence: None)
  Receive Date: 20120723
  Receipt Date: 20120719
  Transmission Date: 20120928
  Serious: Yes (Other)
  Sender: FDA-Public Use
  Company Number: US-PFIZER INC-2012175319

PATIENT

DRUGS (2)
  1. ARTHROTEC [Suspect]
     Dosage: UNK
  2. LYRICA [Suspect]
     Dosage: UNK

REACTIONS (2)
  - HIP ARTHROPLASTY [None]
  - INTERVERTEBRAL DISC PROTRUSION [None]
